FAERS Safety Report 4802141-3 (Version None)
Quarter: 2005Q4

REPORT INFORMATION
  Report Type: 
  Country: None (occurrence: None)
  Receive Date: 20051011
  Receipt Date: 20050928
  Transmission Date: 20060501
  Serious: Yes (Hospitalization, Other)
  Sender: FDA-Public Use
  Company Number: 2005136238

PATIENT
  Age: 76 Year
  Sex: Male
  Weight: 90.7194 kg

DRUGS (1)
  1. LIPITOR [Suspect]
     Indication: BLOOD CHOLESTEROL INCREASED
     Dosage: 10 MG (10 MG, 1 IN 1 D)
     Dates: end: 20050922

REACTIONS (10)
  - ABASIA [None]
  - AMYOTROPHIC LATERAL SCLEROSIS [None]
  - BACK DISORDER [None]
  - BURNING SENSATION [None]
  - DIZZINESS [None]
  - DRUG INEFFECTIVE [None]
  - HYPERTENSION [None]
  - MUSCULAR WEAKNESS [None]
  - MYALGIA [None]
  - NERVE INJURY [None]
